APPROVED DRUG PRODUCT: MILNACIPRAN HYDROCHLORIDE
Active Ingredient: MILNACIPRAN HYDROCHLORIDE
Strength: 25MG
Dosage Form/Route: TABLET;ORAL
Application: A205147 | Product #002
Applicant: HETERO LABS LTD UNIT V
Approved: Oct 3, 2024 | RLD: No | RS: No | Type: DISCN